FAERS Safety Report 10750144 (Version 2)
Quarter: 2015Q2

REPORT INFORMATION
  Report Type: Report from Study
  Country: TW (occurrence: TW)
  Receive Date: 20150129
  Receipt Date: 20150522
  Transmission Date: 20150821
  Serious: No
  Sender: FDA-Public Use
  Company Number: PHHY2014TW105540

PATIENT
  Age: 55 Year
  Sex: Male

DRUGS (34)
  1. CETYLPYRIDINIUM [Concomitant]
     Active Substance: CETYLPYRIDINIUM
     Indication: PRODUCT USED FOR UNKNOWN INDICATION
     Dosage: 1 DF, UNK
     Route: 048
     Dates: start: 20140704, end: 20140707
  2. LEVOCETIRIZINE [Concomitant]
     Active Substance: LEVOCETIRIZINE
     Dosage: 5 MG, UNK
     Route: 048
     Dates: start: 20141225, end: 20150101
  3. CEPHRADINE [Concomitant]
     Active Substance: CEPHRADINE
     Dosage: 1 DF, UNK
     Route: 048
     Dates: start: 20140802, end: 20140805
  4. FLURBIPROFEN. [Concomitant]
     Active Substance: FLURBIPROFEN
     Indication: PRODUCT USED FOR UNKNOWN INDICATION
     Dosage: 1 DF, UNK
     Route: 048
     Dates: start: 20140610, end: 20140613
  5. LEVOCETIRIZINE [Concomitant]
     Active Substance: LEVOCETIRIZINE
     Dosage: 5 MG, UNK
     Route: 048
     Dates: start: 20150312, end: 20150319
  6. ACETAMINOPHEN. [Concomitant]
     Active Substance: ACETAMINOPHEN
     Indication: PRODUCT USED FOR UNKNOWN INDICATION
     Dosage: 500 MG, UNK
     Route: 048
     Dates: start: 20140704, end: 20140707
  7. ACETAMINOPHEN. [Concomitant]
     Active Substance: ACETAMINOPHEN
     Dosage: 500 UNK, UNK
     Route: 048
     Dates: start: 20150312, end: 20150319
  8. AMBROXOL [Concomitant]
     Active Substance: AMBROXOL
     Indication: PRODUCT USED FOR UNKNOWN INDICATION
     Dosage: 1 DF, UNK
     Route: 048
     Dates: start: 20140610, end: 20140613
  9. AMBROXOL [Concomitant]
     Active Substance: AMBROXOL
     Dosage: 1 TAB, UNK
     Route: 048
     Dates: start: 20140802, end: 20140805
  10. DYPHYLLINE [Concomitant]
     Active Substance: DYPHYLLINE
     Indication: PRODUCT USED FOR UNKNOWN INDICATION
     Dosage: 1 DF, UNK
     Route: 048
     Dates: start: 20140704, end: 20140707
  11. DICLOFENAC [Concomitant]
     Active Substance: DICLOFENAC
     Dosage: 1 DF, UNK
     Route: 048
     Dates: start: 20140726, end: 20140729
  12. ACETAMINOPHEN. [Concomitant]
     Active Substance: ACETAMINOPHEN
     Dosage: 500 UNK, UNK
     Route: 048
     Dates: start: 20150212, end: 20150219
  13. CLINDAMYCIN [Concomitant]
     Active Substance: CLINDAMYCIN\CLINDAMYCIN PHOSPHATE
     Indication: PRODUCT USED FOR UNKNOWN INDICATION
     Dosage: 1 DF, UNK
     Route: 048
     Dates: start: 20140726, end: 20140802
  14. AMN107 [Suspect]
     Active Substance: NILOTINIB
     Indication: CHRONIC MYELOID LEUKAEMIA
     Dosage: UNK
     Route: 065
  15. BISMUTH SUBCARBONATE. [Concomitant]
     Active Substance: BISMUTH SUBCARBONATE
     Indication: PRODUCT USED FOR UNKNOWN INDICATION
     Dosage: 1 DF, UNK
     Route: 048
     Dates: start: 20140805
  16. EPRAZINONE [Concomitant]
     Active Substance: EPRAZINONE
     Dosage: 1 DF, UNK
     Route: 048
     Dates: start: 20140726, end: 20140729
  17. MEQUITAZINE [Concomitant]
     Active Substance: MEQUITAZINE
     Indication: PRODUCT USED FOR UNKNOWN INDICATION
     Dosage: 1 DF, UNK
     Route: 048
     Dates: start: 20140726, end: 20140729
  18. ERYTHROMYCIN. [Concomitant]
     Active Substance: ERYTHROMYCIN
     Indication: PRODUCT USED FOR UNKNOWN INDICATION
     Dosage: 250 MG, UNK
     Route: 048
     Dates: start: 20140811, end: 20140816
  19. MEDICON A [Concomitant]
     Indication: PRODUCT USED FOR UNKNOWN INDICATION
     Dosage: 1 DF, UNK
     Route: 048
     Dates: start: 20141204, end: 20141211
  20. ACETAMINOPHEN. [Concomitant]
     Active Substance: ACETAMINOPHEN
     Dosage: 500 UNK, UNK
     Route: 048
     Dates: start: 20140811, end: 20140820
  21. CEPHRADINE [Concomitant]
     Active Substance: CEPHRADINE
     Indication: PRODUCT USED FOR UNKNOWN INDICATION
     Dosage: 1 DF, UNK
     Route: 048
     Dates: start: 20140610, end: 20140613
  22. PIPRINHYDRINATE [Concomitant]
     Indication: PRODUCT USED FOR UNKNOWN INDICATION
     Dosage: 1 DF, UNK
     Route: 048
     Dates: start: 20140704, end: 20140707
  23. MEFENAMIC [Concomitant]
     Active Substance: MEFENAMIC ACID
     Indication: PRODUCT USED FOR UNKNOWN INDICATION
     Dosage: 1 DF, UNK
     Route: 048
     Dates: start: 20140802
  24. ACEMETACIN [Concomitant]
     Active Substance: ACEMETACIN
     Indication: PRODUCT USED FOR UNKNOWN INDICATION
     Dosage: 60 MG, UNK
     Route: 048
     Dates: start: 20140820, end: 20140823
  25. PROPRANOLOL HCL [Concomitant]
     Active Substance: PROPRANOLOL HYDROCHLORIDE
     Indication: PRODUCT USED FOR UNKNOWN INDICATION
     Dosage: 10 MG, UNK
     Route: 048
     Dates: start: 20140820, end: 20140823
  26. NAPROXEN. [Concomitant]
     Active Substance: NAPROXEN
     Indication: PRODUCT USED FOR UNKNOWN INDICATION
     Dosage: 250 MG, UNK
     Route: 048
     Dates: start: 20140730, end: 20140802
  27. LEVOCETIRIZINE [Concomitant]
     Active Substance: LEVOCETIRIZINE
     Indication: PRODUCT USED FOR UNKNOWN INDICATION
     Dosage: 5 MG, UNK
     Route: 048
     Dates: start: 20141204, end: 20141211
  28. MEDICON A [Concomitant]
     Dosage: 1 DF, UNK
     Route: 048
     Dates: start: 20141225, end: 20150101
  29. ACETAMINOPHEN. [Concomitant]
     Active Substance: ACETAMINOPHEN
     Dosage: 500 UNK, UNK
     Route: 048
     Dates: start: 20150115, end: 20150122
  30. AMBROXOL [Concomitant]
     Active Substance: AMBROXOL
     Dosage: 1 TAB, UNK
     Route: 048
     Dates: start: 20140726, end: 20140729
  31. DICLOFENAC [Concomitant]
     Active Substance: DICLOFENAC
     Indication: PRODUCT USED FOR UNKNOWN INDICATION
     Dosage: 1 DF, UNK
     Route: 048
     Dates: start: 20140802, end: 20140805
  32. ACETAMINOPHEN. [Concomitant]
     Active Substance: ACETAMINOPHEN
     Dosage: 1 DF, UNK
     Route: 048
     Dates: start: 20140730, end: 20140802
  33. CEPHALEXIN. [Concomitant]
     Active Substance: CEPHALEXIN
     Indication: PRODUCT USED FOR UNKNOWN INDICATION
     Dosage: 250 MG, UNK
     Route: 048
     Dates: start: 20140816, end: 20140820
  34. MEDICON A [Concomitant]
     Dosage: 1 DF, UNK
     Route: 048
     Dates: start: 20150312, end: 20150319

REACTIONS (2)
  - Upper respiratory tract infection [Not Recovered/Not Resolved]
  - Upper respiratory tract infection [Not Recovered/Not Resolved]

NARRATIVE: CASE EVENT DATE: 20140610
